FAERS Safety Report 13661698 (Version 1)
Quarter: 2017Q2

REPORT INFORMATION
  Report Type: Spontaneous
  Country: GB (occurrence: GB)
  Receive Date: 20170616
  Receipt Date: 20170616
  Transmission Date: 20170830
  Serious: Yes (Hospitalization)
  Sender: FDA-Public Use
  Company Number: GB-MYLANLABS-2017M1034755

PATIENT

DRUGS (29)
  1. CO-TENIDONE [Suspect]
     Active Substance: ATENOLOL\CHLORTHALIDONE
     Dosage: 50MG/12.5MG MORNING.
     Route: 048
  2. TINOSPORA CORDIFOLIA [Suspect]
     Active Substance: HERBALS
  3. HOLARRHENA [Suspect]
     Active Substance: HERBALS
  4. KALMS [Suspect]
     Active Substance: HERBALS
     Route: 048
  5. NYTOL [Suspect]
     Active Substance: DIPHENHYDRAMINE HYDROCHLORIDE
     Dosage: NIGHT.
     Route: 048
  6. HYDROCHLOROTHIAZIDE. [Suspect]
     Active Substance: HYDROCHLOROTHIAZIDE
     Dosage: NIGHT.
     Route: 048
  7. SYZYGIUM CUMINI [Suspect]
     Active Substance: HERBALS
  8. SALACIA CHINENSIS [Suspect]
     Active Substance: HERBALS
  9. ADHATODA VASICA [Suspect]
     Active Substance: HERBALS
  10. CLARITHROMYCIN. [Suspect]
     Active Substance: CLARITHROMYCIN
     Route: 048
  11. TRIBULUS TERRESTRIS ROOT [Suspect]
     Active Substance: TRIBULUS TERRESTRIS ROOT
  12. EMBLICA OFFICINALIS [Suspect]
     Active Substance: HERBALS
  13. AMOXICILLIN. [Suspect]
     Active Substance: AMOXICILLIN
     Route: 048
  14. METFORMIN [Suspect]
     Active Substance: METFORMIN HYDROCHLORIDE
     Route: 048
  15. TRIGONELLA FOENUM-GRAECUM [Suspect]
     Active Substance: FENUGREEK LEAF\HERBALS
  16. GYMNEMA SYLVESTRE [Suspect]
     Active Substance: HERBALS
  17. PANTOPRAZOLE [Suspect]
     Active Substance: PANTOPRAZOLE
     Route: 048
  18. AZADIRACHTA INDICA [Suspect]
     Active Substance: HERBALS
  19. TERMINALIA CHEBULA FRUIT [Suspect]
     Active Substance: TERMINALIA CHEBULA FRUIT
     Dosage: UNK
  20. OLMESARTAN MEDOXOMIL. [Suspect]
     Active Substance: OLMESARTAN MEDOXOMIL
     Dosage: NIGHT
     Route: 048
  21. WITHANIA SOMNIFERA [Suspect]
     Active Substance: HERBALS
  22. STRYCHNOS NUX-VOMICA [Suspect]
     Active Substance: HERBALS\STRYCHNOS NUX-VOMICA SEED
  23. PICRORHIZA KURROA [Suspect]
     Active Substance: HERBALS
  24. TURMERIC [Suspect]
     Active Substance: HERBALS\TURMERIC
  25. AEGLE MARMELOS FRUIT [Suspect]
     Active Substance: HERBALS
  26. CURCUMA ZEDOARIA [Suspect]
     Active Substance: HERBALS
  27. SWERTIA CHIRATA [Suspect]
     Active Substance: HERBALS
  28. TERMINALIA BELLIRICA [Suspect]
     Active Substance: HERBALS
  29. ACACIA ARABICA [Suspect]
     Active Substance: ACACIA\HERBALS

REACTIONS (1)
  - Hyponatraemia [Recovered/Resolved]
